FAERS Safety Report 24346095 (Version 1)
Quarter: 2024Q3

REPORT INFORMATION
  Report Type: Spontaneous
  Country: US (occurrence: US)
  Receive Date: 20240921
  Receipt Date: 20240921
  Transmission Date: 20241016
  Serious: No
  Sender: ROCHE
  Company Number: US-ROCHE-3557311

PATIENT
  Age: 42 Year
  Sex: Male

DRUGS (7)
  1. CELLCEPT [Suspect]
     Active Substance: MYCOPHENOLATE MOFETIL
     Indication: Pulmonary arterial hypertension
     Route: 065
  2. OFEV [Suspect]
     Active Substance: NINTEDANIB
     Indication: Idiopathic interstitial pneumonia
     Route: 065
  3. TREPROSTINIL [Suspect]
     Active Substance: TREPROSTINIL
     Indication: Pulmonary arterial hypertension
     Route: 048
     Dates: start: 20240305, end: 20240320
  4. TREPROSTINIL [Suspect]
     Active Substance: TREPROSTINIL
     Dosage: 0.625 MG (2 TABLETS OF 0.25 MG 03/20/2024 TO 03/27/2024?REGIMEN # 3 AND 1 TABLET OF 0.125 MG), TID,
     Route: 048
     Dates: start: 20240320, end: 20240327
  5. TREPROSTINIL [Suspect]
     Active Substance: TREPROSTINIL
     Route: 048
     Dates: start: 20240327
  6. TREPROSTINIL [Suspect]
     Active Substance: TREPROSTINIL
     Route: 048
     Dates: start: 202401
  7. RITUXAN [Concomitant]
     Active Substance: RITUXIMAB

REACTIONS (7)
  - Diarrhoea [Recovering/Resolving]
  - Gastroenteritis viral [Unknown]
  - Gastrointestinal disorder [Unknown]
  - Chest pain [Unknown]
  - Dizziness [Unknown]
  - Peripheral swelling [Unknown]
  - Fatigue [Unknown]

NARRATIVE: CASE EVENT DATE: 20240321
